FAERS Safety Report 17277810 (Version 1)
Quarter: 2020Q1

REPORT INFORMATION
  Report Type: Spontaneous
  Country: US (occurrence: US)
  Receive Date: 20200116
  Receipt Date: 20200116
  Transmission Date: 20200409
  Serious: Yes (Hospitalization)
  Sender: FDA-Public Use
  Company Number: None

PATIENT
  Sex: Female

DRUGS (8)
  1. TYMLOS [Concomitant]
     Active Substance: ABALOPARATIDE
  2. FOLIC ACID. [Concomitant]
     Active Substance: FOLIC ACID
  3. MELOXICAM. [Concomitant]
     Active Substance: MELOXICAM
  4. OXYCODONE [Concomitant]
     Active Substance: OXYCODONE
  5. TIZANIDINE. [Concomitant]
     Active Substance: TIZANIDINE
  6. METHOTREXATE. [Concomitant]
     Active Substance: METHOTREXATE
  7. HUMIRA [Suspect]
     Active Substance: ADALIMUMAB
     Indication: RHEUMATOID ARTHRITIS
     Dosage: ?          OTHER FREQUENCY:EVERY 2 WEEKS;?
     Route: 058
     Dates: start: 20150921
  8. PREDNISONE. [Concomitant]
     Active Substance: PREDNISONE

REACTIONS (1)
  - Rheumatoid arthritis [None]
